FAERS Safety Report 5313802-4 (Version None)
Quarter: 2007Q2

REPORT INFORMATION
  Report Type: 
  Country: None (occurrence: None)
  Receive Date: 20070501
  Receipt Date: 20070419
  Transmission Date: 20071010
  Serious: Yes (Hospitalization, Other)
  Sender: FDA-Public Use
  Company Number: US-ROCHE-481517

PATIENT
  Age: 89 Year
  Sex: Male
  Weight: 63.9 kg

DRUGS (6)
  1. XELODA [Suspect]
     Dosage: FIRST COURSE ASSOCIATED WITH FIRST EPISODE OF HAND FOOT SYNDROME.
     Route: 048
  2. XELODA [Suspect]
     Route: 048
     Dates: start: 20061201
  3. XELODA [Suspect]
     Dosage: HE TOOK 1500 MG AND 1000 MG DAILY.
     Route: 048
     Dates: start: 20061222, end: 20070111
  4. XELODA [Suspect]
     Route: 048
     Dates: start: 20070111, end: 20070121
  5. XELODA [Suspect]
     Route: 048
     Dates: start: 20070123, end: 20070123
  6. PREDNISONE TAB [Concomitant]
     Indication: IDIOPATHIC THROMBOCYTOPENIC PURPURA

REACTIONS (7)
  - DIARRHOEA [None]
  - EATING DISORDER [None]
  - GASTRITIS [None]
  - IDIOPATHIC THROMBOCYTOPENIC PURPURA [None]
  - INFLUENZA [None]
  - OESOPHAGITIS [None]
  - PALMAR-PLANTAR ERYTHRODYSAESTHESIA SYNDROME [None]
